FAERS Safety Report 7556624-6 (Version None)
Quarter: 2011Q2

REPORT INFORMATION
  Report Type: 
  Country: None (occurrence: None)
  Receive Date: 20110618
  Receipt Date: 20110618
  Transmission Date: 20111010
  Serious: Yes (Hospitalization)
  Sender: FDA-Public Use
  Company Number: None

PATIENT
  Sex: Male
  Weight: 95 kg

DRUGS (2)
  1. CISPLATIN [Suspect]
     Dosage: 175 MG
  2. ETOPOSIDE [Suspect]
     Dosage: 657 MG

REACTIONS (3)
  - PYREXIA [None]
  - NEUTROPHIL COUNT DECREASED [None]
  - HAEMOGLOBIN DECREASED [None]
